FAERS Safety Report 22968643 (Version 7)
Quarter: 2024Q2

REPORT INFORMATION
  Report Type: Report from Study
  Country: US (occurrence: US)
  Receive Date: 20230921
  Receipt Date: 20240607
  Transmission Date: 20240715
  Serious: Yes (Other)
  Sender: FDA-Public Use
  Company Number: US-ACADIA PHARMACEUTICALS INC.-ACA-2023-TRF-003827

PATIENT
  Age: 8 Year
  Sex: Female

DRUGS (2)
  1. DAYBUE [Suspect]
     Active Substance: TROFINETIDE
     Indication: Rett syndrome
     Dosage: 40 MILLILITER, BID
     Route: 048
  2. BUSPIRONE [Suspect]
     Active Substance: BUSPIRONE HYDROCHLORIDE
     Route: 065

REACTIONS (12)
  - Seizure [Not Recovered/Not Resolved]
  - Acne [Not Recovered/Not Resolved]
  - Breath holding [Unknown]
  - Infection [Unknown]
  - Rash [Unknown]
  - Acne [Unknown]
  - Intentional dose omission [Not Recovered/Not Resolved]
  - Rash [Not Recovered/Not Resolved]
  - SARS-CoV-2 test positive [Unknown]
  - Dysphagia [Unknown]
  - Aggression [Unknown]
  - Incorrect dose administered [Unknown]

NARRATIVE: CASE EVENT DATE: 20240101
